FAERS Safety Report 13241499 (Version 1)
Quarter: 2017Q1

REPORT INFORMATION
  Report Type: Spontaneous
  Country: US (occurrence: US)
  Receive Date: 20170216
  Receipt Date: 20170216
  Transmission Date: 20170428
  Serious: No
  Sender: FDA-Public Use
  Company Number: US-MYLANLABS-2016M1024041

PATIENT
  Age: 65 Year
  Sex: Female
  Weight: 54 kg

DRUGS (1)
  1. EPIPEN [Suspect]
     Active Substance: EPINEPHRINE
     Indication: ARTHROPOD STING
     Dosage: UNK
     Dates: start: 20160604, end: 20160604

REACTIONS (10)
  - Injection site pain [Unknown]
  - Injection site bruising [Unknown]
  - Injection site hypoaesthesia [Unknown]
  - Injection site swelling [Unknown]
  - Injection site coldness [Unknown]
  - Pain in extremity [Unknown]
  - Expired product administered [Unknown]
  - Injection site injury [Unknown]
  - Accidental exposure to product [Unknown]
  - Palpitations [Unknown]

NARRATIVE: CASE EVENT DATE: 20160604
